FAERS Safety Report 19812671 (Version 1)
Quarter: 2021Q3

REPORT INFORMATION
  Report Type: Spontaneous
  Country: US (occurrence: US)
  Receive Date: 20210909
  Receipt Date: 20210909
  Transmission Date: 20211014
  Serious: Yes (Death, Other)
  Sender: FDA-Public Use
  Company Number: US-BAUSCH-BL-2021-029305

PATIENT
  Age: 44 Year
  Sex: Male

DRUGS (31)
  1. PEGASPARGASE [Suspect]
     Active Substance: PEGASPARGASE
     Indication: ANGIOCENTRIC LYMPHOMA
     Dosage: 2000 U/M2 GIVEN ON DAY 8 OF A 28?DAY CYCLE
     Route: 065
     Dates: start: 20200126, end: 20200327
  2. PEGASPARGASE [Suspect]
     Active Substance: PEGASPARGASE
     Dosage: 6TH CYCLE
     Route: 065
     Dates: start: 20200703, end: 20200703
  3. DEXAMETHASONE. [Suspect]
     Active Substance: DEXAMETHASONE
     Dosage: 3RD CYCLE WITH 40% REDUCTION IN DOSE
     Route: 065
     Dates: start: 20200328, end: 20200330
  4. DEXAMETHASONE. [Suspect]
     Active Substance: DEXAMETHASONE
     Dosage: 4TH CYCLE 25 % DOSE REDUCED
     Route: 065
     Dates: start: 20200424, end: 20200426
  5. IFOSFAMIDE. [Suspect]
     Active Substance: IFOSFAMIDE
     Dosage: 5TH CYCLE
     Route: 065
     Dates: start: 20200529, end: 20200531
  6. METHOTREXATE. [Suspect]
     Active Substance: METHOTREXATE
     Dosage: DOSE HAD TO BE REDUCED 50 PERCENT (3RD CYCLE)
     Route: 065
     Dates: start: 20200327, end: 20200327
  7. METHOTREXATE. [Suspect]
     Active Substance: METHOTREXATE
     Dosage: 4TH CYCLE WITH 25 PERCENT DOSE REDUCTION
     Route: 065
     Dates: start: 20200423, end: 20200423
  8. DEXAMETHASONE. [Suspect]
     Active Substance: DEXAMETHASONE
     Dosage: SECOND CYCLE
     Route: 065
     Dates: start: 20200217, end: 20200219
  9. PEGASPARGASE [Suspect]
     Active Substance: PEGASPARGASE
     Dosage: 2000 U/M2 GIVEN ON DAY 8 OF A 28?DAY CYCLE
     Route: 065
     Dates: start: 20200223, end: 20200223
  10. ETOPOSIDE. [Suspect]
     Active Substance: ETOPOSIDE
     Dosage: 3RD CYCLE 40 % DOSE REDUCED
     Route: 065
     Dates: start: 20200328, end: 20200330
  11. ETOPOSIDE. [Suspect]
     Active Substance: ETOPOSIDE
     Dosage: 25 PERCENT DOSE REDUCTION 4TH CYCLE
     Route: 065
     Dates: start: 20200424, end: 20200426
  12. ETOPOSIDE. [Suspect]
     Active Substance: ETOPOSIDE
     Dosage: 6TH CYCLE
     Route: 065
     Dates: start: 20200627, end: 20200629
  13. DEXAMETHASONE. [Suspect]
     Active Substance: DEXAMETHASONE
     Dosage: 6TH CYCLE
     Route: 065
     Dates: start: 20200627, end: 20200629
  14. IFOSFAMIDE. [Suspect]
     Active Substance: IFOSFAMIDE
     Indication: ANGIOCENTRIC LYMPHOMA
     Dosage: ON DAYS 2 TO 4  FOR 1 CYCLE OF A 28?DAY CYCLE
     Route: 065
     Dates: start: 20200120, end: 20200122
  15. IFOSFAMIDE. [Suspect]
     Active Substance: IFOSFAMIDE
     Dosage: 4TH CYCLE 25 % DOSE REDUCED
     Route: 065
     Dates: start: 20200424, end: 20200426
  16. ETOPOSIDE. [Suspect]
     Active Substance: ETOPOSIDE
     Dosage: SECOND CYCLE
     Route: 065
     Dates: start: 20200217, end: 20200219
  17. METHOTREXATE. [Suspect]
     Active Substance: METHOTREXATE
     Indication: ANGIOCENTRIC LYMPHOMA
     Dosage: 2 G/ M2 GIVEN ON DAY 1 FOR 1 CYCLE
     Route: 065
     Dates: start: 20200119
  18. METHOTREXATE. [Suspect]
     Active Substance: METHOTREXATE
     Indication: PROPHYLAXIS
     Dosage: PROPHYLACTIC INTRAVITREAL 4 DOSES
     Route: 031
     Dates: start: 20200211, end: 20200221
  19. METHOTREXATE. [Suspect]
     Active Substance: METHOTREXATE
     Dosage: 5TH CYCLE
     Route: 065
     Dates: start: 20200528, end: 20200528
  20. PEGASPARGASE [Suspect]
     Active Substance: PEGASPARGASE
     Dosage: 3RD CYCLE 40 % DOSE REDUCED
     Route: 065
     Dates: start: 20200403, end: 20200403
  21. PEGASPARGASE [Suspect]
     Active Substance: PEGASPARGASE
     Dosage: 4TH CYCLE 25 % DOSE REDUCED
     Route: 065
     Dates: start: 20200430, end: 20200430
  22. ETOPOSIDE. [Suspect]
     Active Substance: ETOPOSIDE
     Dosage: 5TH CYCLE
     Route: 065
     Dates: start: 20200529, end: 20200531
  23. METHOTREXATE. [Suspect]
     Active Substance: METHOTREXATE
     Dosage: 5TH CYCLE
     Route: 065
     Dates: start: 20200626, end: 20200626
  24. DEXAMETHASONE. [Suspect]
     Active Substance: DEXAMETHASONE
     Indication: ANGIOCENTRIC LYMPHOMA
     Dosage: ON DAYS 2 TO 4 FOR 1 CYCLE OF A 28?DAY CYCLE
     Route: 065
     Dates: start: 20200120, end: 20200122
  25. IFOSFAMIDE. [Suspect]
     Active Substance: IFOSFAMIDE
     Dosage: 3RD CYCLE 40% REDUCTION IN DOSE
     Route: 065
     Dates: start: 20200328, end: 20200330
  26. IFOSFAMIDE. [Suspect]
     Active Substance: IFOSFAMIDE
     Dosage: SECOND CYCLE
     Route: 065
     Dates: start: 20200217, end: 20200219
  27. IFOSFAMIDE. [Suspect]
     Active Substance: IFOSFAMIDE
     Dosage: 6TH CYCLE
     Route: 065
     Dates: start: 20200627, end: 20200629
  28. PEGASPARGASE [Suspect]
     Active Substance: PEGASPARGASE
     Dosage: 5TH CYCLE
     Route: 065
     Dates: start: 20200604, end: 20200604
  29. METHOTREXATE. [Suspect]
     Active Substance: METHOTREXATE
     Dosage: SECOND CYCLE OF M?SMILE
     Route: 065
     Dates: start: 20200216, end: 20200216
  30. DEXAMETHASONE. [Suspect]
     Active Substance: DEXAMETHASONE
     Dosage: 5TH CYCLE
     Route: 065
     Dates: start: 20200529, end: 20200531
  31. ETOPOSIDE. [Suspect]
     Active Substance: ETOPOSIDE
     Indication: ANGIOCENTRIC LYMPHOMA
     Dosage: ON DAYS 2 TO 4  FOR 1 CYCLE OF A 28?DAY CYCLE
     Route: 065
     Dates: start: 20200120, end: 20200122

REACTIONS (2)
  - Cytopenia [Unknown]
  - Renal injury [Unknown]

NARRATIVE: CASE EVENT DATE: 2020
